FAERS Safety Report 16661194 (Version 1)
Quarter: 2019Q3

REPORT INFORMATION
  Report Type: Report from Study
  Country: CA (occurrence: CA)
  Receive Date: 20190802
  Receipt Date: 20190802
  Transmission Date: 20191004
  Serious: Yes (Hospitalization)
  Sender: FDA-Public Use
  Company Number: CA-TEVA-2019-CA-1085602

PATIENT
  Age: 48 Year
  Sex: Female

DRUGS (8)
  1. DEFERASIROX. [Suspect]
     Active Substance: DEFERASIROX
     Indication: CONGENITAL APLASTIC ANAEMIA
     Dosage: 3000 MILLIGRAM DAILY;
     Route: 048
  2. DESFERAL [Suspect]
     Active Substance: DEFEROXAMINE MESYLATE
     Indication: CONGENITAL APLASTIC ANAEMIA
  3. DEFERASIROX. [Suspect]
     Active Substance: DEFERASIROX
     Indication: CONGENITAL APLASTIC ANAEMIA
     Dosage: 900 MILLIGRAM DAILY;
     Route: 048
  4. DEFERASIROX. [Suspect]
     Active Substance: DEFERASIROX
     Route: 048
  5. DESFERAL [Suspect]
     Active Substance: DEFEROXAMINE MESYLATE
     Indication: IRON OVERLOAD
     Route: 042
  6. EXJADE [Suspect]
     Active Substance: DEFERASIROX
     Indication: CONGENITAL APLASTIC ANAEMIA
     Route: 048
  7. DEFEROXAMINE [Suspect]
     Active Substance: DEFEROXAMINE MESYLATE
     Indication: CONGENITAL APLASTIC ANAEMIA
     Route: 042
  8. EXJADE [Suspect]
     Active Substance: DEFERASIROX
     Route: 048

REACTIONS (8)
  - Bacterial infection [Unknown]
  - Abdominal discomfort [Unknown]
  - Liver iron concentration increased [Unknown]
  - Malaise [Unknown]
  - Memory impairment [Unknown]
  - Serum ferritin increased [Unknown]
  - Drug intolerance [Unknown]
  - Neoplasm [Unknown]
